FAERS Safety Report 4888304-X (Version None)
Quarter: 2006Q1

REPORT INFORMATION
  Report Type: 
  Country: None (occurrence: None)
  Receive Date: 20060123
  Receipt Date: 20050728
  Transmission Date: 20060701
  Serious: Yes (Death, Hospitalization)
  Sender: FDA-Public Use
  Company Number: 13045141

PATIENT
  Age: 42 Year
  Sex: Female

DRUGS (4)
  1. LAMIVUDINE [Suspect]
     Indication: HIV INFECTION
     Dosage: 300MG PER DAY
     Route: 048
     Dates: start: 20040922
  2. STAVUDINE [Suspect]
     Indication: HIV INFECTION
     Dosage: 80MG PER DAY
     Route: 048
     Dates: start: 20040922, end: 20050630
  3. STOCRIN [Suspect]
     Indication: HIV INFECTION
     Dosage: 600MG PER DAY
     Route: 048
     Dates: start: 20040922
  4. ZIDOVUDINE [Suspect]
     Indication: HIV INFECTION
     Dosage: 400MG PER DAY
     Route: 048
     Dates: start: 20050711, end: 20050728

REACTIONS (6)
  - ABDOMINAL PAIN [None]
  - BLOOD LACTATE DEHYDROGENASE INCREASED [None]
  - DYSPNOEA [None]
  - LACTIC ACIDOSIS [None]
  - RENAL FAILURE [None]
  - VOMITING [None]
